FAERS Safety Report 18785049 (Version 1)
Quarter: 2021Q1

REPORT INFORMATION
  Report Type: Spontaneous
  Country: CH (occurrence: CH)
  Receive Date: 20210125
  Receipt Date: 20210125
  Transmission Date: 20210419
  Serious: Yes (Hospitalization)
  Sender: FDA-Public Use
  Company Number: CH-JNJFOC-20210133126

PATIENT
  Sex: Male
  Weight: 110 kg

DRUGS (7)
  1. SERALIN MEPHA [Suspect]
     Active Substance: SERTRALINE HYDROCHLORIDE
     Indication: DEPRESSION
     Dosage: 50 MG, UNK
     Route: 048
     Dates: end: 20200213
  2. RIVAROXABAN [Suspect]
     Active Substance: RIVAROXABAN
     Indication: DEEP VEIN THROMBOSIS
     Dosage: 20 MG, UNK
     Route: 048
     Dates: start: 2018, end: 20200124
  3. PARACETAMOL [Suspect]
     Active Substance: ACETAMINOPHEN
     Indication: PRODUCT USED FOR UNKNOWN INDICATION
     Dosage: 4 G, UNK
     Route: 048
     Dates: start: 20191021, end: 20200123
  4. CEFEPIM [CEFEPIME] [Suspect]
     Active Substance: CEFEPIME HYDROCHLORIDE
     Indication: ERYSIPELAS
     Dosage: 2 G, UNK
     Route: 042
     Dates: start: 20191015, end: 20191021
  5. CLINDAMYCIN PFIZER [CLINDAMYCIN HYDROCHLORIDE] [Suspect]
     Active Substance: CLINDAMYCIN HYDROCHLORIDE
     Indication: ERYSIPELAS
     Dosage: 600 MG, UNK
     Route: 042
     Dates: start: 20191015, end: 20191021
  6. CLINDAMYCIN PFIZER [CLINDAMYCIN HYDROCHLORIDE] [Suspect]
     Active Substance: CLINDAMYCIN HYDROCHLORIDE
     Indication: ERYSIPELAS
     Dosage: 600 MG, UNK
     Route: 048
     Dates: start: 20191021, end: 20191027
  7. LEVOFLOXACIN. [Suspect]
     Active Substance: LEVOFLOXACIN
     Indication: PRODUCT USED FOR UNKNOWN INDICATION
     Dosage: 500 MG, UNK
     Route: 048
     Dates: start: 20191021, end: 20191027

REACTIONS (1)
  - Liver disorder [Recovering/Resolving]
